FAERS Safety Report 4531369-5 (Version None)
Quarter: 2004Q4

REPORT INFORMATION
  Report Type: 
  Country: None (occurrence: None)
  Receive Date: 20041206
  Receipt Date: 20041028
  Transmission Date: 20050328
  Serious: No
  Sender: FDA-Public Use
  Company Number: US_0410106885

PATIENT
  Age: 33 Year
  Sex: Male

DRUGS (2)
  1. CYMBALTA [Suspect]
     Indication: DEPRESSION
     Dosage: 60 MG DAY
     Dates: start: 20040801, end: 20041001
  2. ALPRAZOLAM [Concomitant]

REACTIONS (2)
  - DIZZINESS [None]
  - HYPERHIDROSIS [None]
